FAERS Safety Report 24878597 (Version 1)
Quarter: 2025Q1

REPORT INFORMATION
  Report Type: Spontaneous
  Country: US (occurrence: None)
  Receive Date: 20250122
  Receipt Date: 20250122
  Transmission Date: 20250409
  Serious: No
  Sender: FDA-CTU
  Company Number: None

PATIENT
  Age: 8 Year
  Sex: Female
  Weight: 22.6 kg

DRUGS (3)
  1. TRIKAFTA [Suspect]
     Active Substance: ELEXACAFTOR\IVACAFTOR\TEZACAFTOR
     Indication: Amyloidosis
     Dosage: 1 MG TWICE A DAY ORAL
     Route: 048
     Dates: start: 20240213
  2. Creon 12,000 Unit Capsule [Concomitant]
     Dates: start: 20240213
  3. Tobramycin 300mg/5ml Ampule [Concomitant]
     Dates: start: 20240125

REACTIONS (4)
  - Mental status changes [None]
  - Brain fog [None]
  - Anger [None]
  - Depression [None]

NARRATIVE: CASE EVENT DATE: 20250122
